FAERS Safety Report 15826140 (Version 1)
Quarter: 2018Q4

REPORT INFORMATION
  Report Type: Spontaneous
  Country: US (occurrence: US)
  Receive Date: 20181218
  Receipt Date: 20181218
  Transmission Date: 20190205
  Serious: Yes (Death, Hospitalization)
  Sender: FDA-Public Use
  Company Number: None

PATIENT
  Age: 31 Month
  Sex: Male
  Weight: 10.5 kg

DRUGS (6)
  1. CYCLOPHOSPHAMIDE. [Suspect]
     Active Substance: CYCLOPHOSPHAMIDE
     Dates: end: 20161112
  2. ETOPOSIDE (VP-16) [Suspect]
     Active Substance: ETOPOSIDE
     Dates: end: 20161112
  3. DEXAMETHASONE. [Suspect]
     Active Substance: DEXAMETHASONE
     Dates: end: 20161028
  4. METHOTREXATE. [Suspect]
     Active Substance: METHOTREXATE
     Dates: end: 20161103
  5. ONCASPAR [Suspect]
     Active Substance: PEGASPARGASE
     Dates: end: 20161103
  6. VINCRISTINE SULFATE. [Suspect]
     Active Substance: VINCRISTINE SULFATE
     Dates: end: 20161024

REACTIONS (8)
  - Hypotension [None]
  - Oxygen saturation decreased [None]
  - Pyrexia [None]
  - Pneumonia [None]
  - Opportunistic infection [None]
  - Tachypnoea [None]
  - Tachycardia [None]
  - Bradycardia [None]

NARRATIVE: CASE EVENT DATE: 20161116
